FAERS Safety Report 11816411 (Version 2)
Quarter: 2015Q4

REPORT INFORMATION
  Report Type: Spontaneous
  Country: AU (occurrence: AU)
  Receive Date: 20151209
  Receipt Date: 20151211
  Transmission Date: 20160305
  Serious: Yes (Other)
  Sender: FDA-Public Use
  Company Number: PHHY2015AU160719

PATIENT
  Age: 29 Year
  Sex: Female

DRUGS (4)
  1. GENTAMICIN. [Suspect]
     Active Substance: GENTAMICIN
     Indication: PRODUCT USED FOR UNKNOWN INDICATION
     Route: 065
  2. CEFTRIAXONE. [Concomitant]
     Active Substance: CEFTRIAXONE
     Indication: PRODUCT USED FOR UNKNOWN INDICATION
     Route: 065
  3. INSULIN [Concomitant]
     Active Substance: INSULIN NOS
     Indication: TYPE 2 DIABETES MELLITUS
     Dosage: 116 U, QD
     Route: 065
  4. DICLOFENAC [Suspect]
     Active Substance: DICLOFENAC
     Indication: POSTOPERATIVE ANALGESIA
     Dosage: 50 MG, UNK
     Route: 065

REACTIONS (7)
  - Acute kidney injury [Recovering/Resolving]
  - Azotaemia [Unknown]
  - Blood creatinine increased [Unknown]
  - Tubulointerstitial nephritis [Unknown]
  - Hyperkalaemia [Unknown]
  - Polyuria [Recovering/Resolving]
  - Pyrexia [Unknown]
